FAERS Safety Report 4358430-2 (Version None)
Quarter: 2004Q2

REPORT INFORMATION
  Report Type: 
  Country: None (occurrence: None)
  Receive Date: 20040514
  Receipt Date: 20040505
  Transmission Date: 20050107
  Serious: Yes (Other)
  Sender: FDA-Public Use
  Company Number: US-ROCHE-367059

PATIENT
  Age: 69 Year
  Sex: Female

DRUGS (1)
  1. LARIAM [Suspect]
     Route: 048

REACTIONS (2)
  - ARRHYTHMIA [None]
  - GLAUCOMA [None]
